FAERS Safety Report 22093061 (Version 1)
Quarter: 2023Q1

REPORT INFORMATION
  Report Type: Spontaneous
  Country: US (occurrence: US)
  Receive Date: 20230314
  Receipt Date: 20230314
  Transmission Date: 20230417
  Serious: Yes (Other)
  Sender: FDA-Public Use
  Company Number: US-Clinigen Group PLC/ Clinigen Healthcare Ltd-US-CLGN-23-00101

PATIENT
  Sex: Male

DRUGS (2)
  1. FOSCARNET SODIUM [Suspect]
     Active Substance: FOSCARNET SODIUM
     Indication: Cytomegalovirus enteritis
     Route: 042
  2. FOSCARNET SODIUM [Suspect]
     Active Substance: FOSCARNET SODIUM
     Indication: Cytomegalovirus infection reactivation

REACTIONS (5)
  - Intestinal ischaemia [Unknown]
  - Pancreatitis necrotising [Unknown]
  - Gastrointestinal perforation [Unknown]
  - Gastrointestinal haemorrhage [Unknown]
  - Drug effective for unapproved indication [Unknown]
